FAERS Safety Report 8842241 (Version 1)
Quarter: 2012Q4

REPORT INFORMATION
  Report Type: 
  Country: US (occurrence: US)
  Receive Date: 20121016
  Receipt Date: 20121016
  Transmission Date: 20130627
  Serious: Yes (Other)
  Sender: FDA-Public Use
  Company Number: US-BAYER-2012-106416

PATIENT
  Sex: Female

DRUGS (1)
  1. CIPRO [Suspect]
     Indication: URINARY TRACT INFECTION

REACTIONS (6)
  - Ulcer haemorrhage [None]
  - Pain [None]
  - Urine flow decreased [None]
  - Arthritis [None]
  - Arthropathy [None]
  - Tendon disorder [None]
